FAERS Safety Report 5961845-X (Version None)
Quarter: 2008Q4

REPORT INFORMATION
  Report Type: 
  Country: None (occurrence: None)
  Receive Date: 20081121
  Receipt Date: 20080507
  Transmission Date: 20090506
  Serious: No
  Sender: FDA-Public Use
  Company Number: US-BRISTOL-MYERS SQUIBB COMPANY-14106850

PATIENT
  Age: 6 Decade
  Sex: Female
  Weight: 59 kg

DRUGS (4)
  1. AVALIDE [Suspect]
     Indication: HYPERTENSION
  2. BENICAR [Suspect]
  3. ASCORBIC ACID [Concomitant]
  4. COQ10 [Concomitant]

REACTIONS (2)
  - OEDEMA [None]
  - PRURITUS [None]
